FAERS Safety Report 9832491 (Version 3)
Quarter: 2014Q1

REPORT INFORMATION
  Report Type: Spontaneous
  Country: IT (occurrence: IT)
  Receive Date: 20140121
  Receipt Date: 20140214
  Transmission Date: 20141002
  Serious: Yes (Other)
  Sender: FDA-Public Use
  Company Number: IT-ASTRAZENECA-2014SE03538

PATIENT
  Age: 22937 Day
  Sex: Female
  Weight: 98 kg

DRUGS (8)
  1. BRILIQUE [Suspect]
     Indication: ACUTE CORONARY SYNDROME
     Dosage: 2 CPR, A LOADING DOSE, INTAKE OF 2 TABLETS X 90 MG
     Route: 048
     Dates: start: 20140108, end: 20140108
  2. BRILIQUE [Suspect]
     Indication: CORONARY ANGIOPLASTY
     Dosage: 2 CPR, A LOADING DOSE, INTAKE OF 2 TABLETS X 90 MG
     Route: 048
     Dates: start: 20140108, end: 20140108
  3. RANITIDINE [Concomitant]
     Dosage: 1 CPR, 150 MG UNKNOWN FREQUENCY
     Route: 048
  4. FUROSEMIDE [Concomitant]
     Route: 048
  5. JANUMET [Concomitant]
     Dosage: 1 CPR, 50 MG SITAGLIPTIN AND 850 MG METFORMIN
     Route: 048
  6. RAMIPRIL [Concomitant]
     Dosage: 1 CPR, 2.5 MG, UNKNOWN FREQUENCY
     Route: 048
  7. BISOPROLOL [Concomitant]
     Dosage: 1 CPR, 2.5 MG, UNKNOWN FREQUENCY
     Route: 048
  8. CLOPIDOGREL [Concomitant]
     Dosage: 4 CPR
     Dates: start: 20140106

REACTIONS (2)
  - Atrioventricular block complete [Recovered/Resolved]
  - Dyspnoea [Recovered/Resolved]
